FAERS Safety Report 5134793-5 (Version None)
Quarter: 2006Q4

REPORT INFORMATION
  Report Type: 
  Country: None (occurrence: None)
  Receive Date: 20061025
  Receipt Date: 20041222
  Transmission Date: 20070319
  Serious: Yes (Life-Threatening, Hospitalization, Disabling, Other)
  Sender: FDA-Public Use
  Company Number: US-MERCK-0412USA02762

PATIENT
  Age: 74 Year
  Sex: Female
  Weight: 62 kg

DRUGS (1)
  1. CUPRIMINE [Suspect]
     Indication: POISONING
     Route: 048
     Dates: start: 20010719, end: 20010722

REACTIONS (18)
  - ANXIETY [None]
  - ARRHYTHMIA [None]
  - ASTHENIA [None]
  - BALANCE DISORDER [None]
  - BREAST HYPERPLASIA [None]
  - ELECTROLYTE IMBALANCE [None]
  - ERYTHEMA [None]
  - MUSCULOSKELETAL STIFFNESS [None]
  - NAIL DISORDER [None]
  - NEUROPATHY PERIPHERAL [None]
  - OEDEMA PERIPHERAL [None]
  - ONYCHOCLASIS [None]
  - PAIN IN EXTREMITY [None]
  - PAIN OF SKIN [None]
  - PANIC ATTACK [None]
  - SENSORY DISTURBANCE [None]
  - SKIN BURNING SENSATION [None]
  - SKIN DISORDER [None]
